FAERS Safety Report 4569472-6 (Version None)
Quarter: 2005Q1

REPORT INFORMATION
  Report Type: 
  Country: None (occurrence: None)
  Receive Date: 20050201
  Receipt Date: 20050121
  Transmission Date: 20050727
  Serious: Yes (Hospitalization)
  Sender: FDA-Public Use
  Company Number: 211916

PATIENT
  Age: 2 Year
  Sex: Male
  Weight: 12.7 kg

DRUGS (6)
  1. NUTROPIN [Suspect]
     Indication: HYPOPITUITARISM
     Dosage: SUBCUTANEOUS
     Route: 058
     Dates: start: 20040818
  2. CORTEF [Concomitant]
  3. DDAVP (DESMOPRESSIN ACETATE) [Concomitant]
  4. DEXAMETHASONE [Concomitant]
  5. KEPPRA [Concomitant]
  6. LEVOXYL [Concomitant]

REACTIONS (4)
  - CONVULSION [None]
  - CRANIOPHARYNGIOMA [None]
  - NEOPLASM RECURRENCE [None]
  - VISUAL ACUITY REDUCED [None]
